FAERS Safety Report 4543073-8 (Version None)
Quarter: 2004Q4

REPORT INFORMATION
  Report Type: 
  Country: None (occurrence: None)
  Receive Date: 20041229
  Receipt Date: 20041216
  Transmission Date: 20050328
  Serious: Yes (Hospitalization)
  Sender: FDA-Public Use
  Company Number: 8006646

PATIENT
  Age: 22 Year
  Sex: Female
  Weight: 45 kg

DRUGS (12)
  1. KEPPRA [Suspect]
     Indication: EPILEPSY
     Dosage: 500 MG 2/D PO
     Route: 048
     Dates: start: 20040201, end: 20040701
  2. KEPPRA [Suspect]
     Indication: EPILEPSY
     Dosage: 500 MG 1/D PO
     Route: 048
     Dates: start: 20040701, end: 20041117
  3. LAMICTAL [Suspect]
     Indication: EPILEPSY
     Dosage: 50 MG 2/D PO
     Route: 048
     Dates: start: 20030101
  4. TEGRETOL-XR [Suspect]
     Indication: EPILEPSY
     Dosage: 400 MG 2/D PO
     Route: 048
     Dates: start: 20030601
  5. MEDROL [Suspect]
     Indication: BRAIN NEOPLASM
     Dosage: 32 MG / D PO
     Route: 048
     Dates: start: 20040407
  6. MEDROL [Suspect]
     Indication: BRAIN NEOPLASM
     Dosage: 16 MG /D PO
     Route: 048
  7. LEVONORGESTREL AND ETHINYL ESTRADIOL [Suspect]
     Indication: ORAL CONTRACEPTION
     Dates: end: 20040401
  8. NATULAN [Suspect]
     Indication: CHEMOTHERAPY
     Dates: end: 20040226
  9. SOLUPRED [Concomitant]
  10. SPECIAFOLDINE [Concomitant]
  11. ZOLOFT [Concomitant]
  12. BELUSTINE [Suspect]
     Indication: CHEMOTHERAPY
     Dates: end: 20040226

REACTIONS (12)
  - CAESAREAN SECTION [None]
  - DRUG EXPOSURE DURING PREGNANCY [None]
  - DRUG EXPOSURE VIA BREAST MILK [None]
  - FATIGUE [None]
  - HYPERTENSION [None]
  - LACTATION DISORDER [None]
  - PRE-ECLAMPSIA [None]
  - PREMATURE BABY [None]
  - THREATENED LABOUR [None]
  - THROMBOCYTOPENIA [None]
  - TREATMENT NONCOMPLIANCE [None]
  - ULTRASOUND ANTENATAL SCREEN ABNORMAL [None]
